FAERS Safety Report 6071940-5 (Version None)
Quarter: 2009Q1

REPORT INFORMATION
  Report Type: 
  Country: None (occurrence: None)
  Receive Date: 20090205
  Receipt Date: 20090205
  Transmission Date: 20090719
  Serious: Yes (Other)
  Sender: FDA-Public Use
  Company Number: None

PATIENT
  Age: 16 Year
  Sex: Male
  Weight: 77.1115 kg

DRUGS (1)
  1. SOLODYN [Suspect]
     Indication: ACNE
     Dosage: 1 TABLET BEDTIME

REACTIONS (5)
  - CHEST PAIN [None]
  - COUGH [None]
  - MIGRAINE [None]
  - OROPHARYNGEAL PAIN [None]
  - RASH [None]
